FAERS Safety Report 5186568-9 (Version None)
Quarter: 2006Q4

REPORT INFORMATION
  Report Type: 
  Country: None (occurrence: None)
  Receive Date: 20061213
  Receipt Date: 20061128
  Transmission Date: 20070319
  Serious: Yes (Hospitalization)
  Sender: FDA-Public Use
  Company Number: 2006EU003158

PATIENT
  Age: 52 Year
  Sex: Male

DRUGS (3)
  1. PROGRAF [Suspect]
     Indication: RENAL TRANSPLANT
     Dates: start: 20040101
  2. CELLCEPT [Concomitant]
  3. PREDNISONE [Concomitant]

REACTIONS (3)
  - EYE DISORDER [None]
  - HALLUCINATION, VISUAL [None]
  - VISUAL DISTURBANCE [None]
